FAERS Safety Report 5714663-1 (Version None)
Quarter: 2008Q2

REPORT INFORMATION
  Report Type: 
  Country: None (occurrence: None)
  Receive Date: 20080423
  Receipt Date: 20080414
  Transmission Date: 20081010
  Serious: Yes (Death)
  Sender: FDA-Public Use
  Company Number: IE-BAYER-200811007BNE

PATIENT
  Age: 69 Year
  Sex: Female

DRUGS (1)
  1. ULTRAVIST 300 [Suspect]
     Indication: COMPUTERISED TOMOGRAM ABDOMEN
     Route: 042
     Dates: start: 20080108, end: 20080108

REACTIONS (3)
  - CARDIO-RESPIRATORY ARREST [None]
  - DYSPNOEA [None]
  - PALLOR [None]
